FAERS Safety Report 11850372 (Version 1)
Quarter: 2015Q4

REPORT INFORMATION
  Report Type: Spontaneous
  Country: US (occurrence: US)
  Receive Date: 20151218
  Receipt Date: 20151218
  Transmission Date: 20160305
  Serious: No
  Sender: FDA-Public Use
  Company Number: US-JNJFOC-20151200253

PATIENT
  Age: 30 Month
  Sex: Female
  Weight: 13.61 kg

DRUGS (1)
  1. TYLENOL [Suspect]
     Active Substance: ACETAMINOPHEN
     Indication: ACCIDENTAL EXPOSURE TO PRODUCT
     Dosage: ABOUT 12 TEASPOON
     Route: 048
     Dates: start: 20151129

REACTIONS (1)
  - Accidental exposure to product by child [Unknown]
